FAERS Safety Report 6252848-9 (Version None)
Quarter: 2009Q2

REPORT INFORMATION
  Report Type: 
  Country: None (occurrence: None)
  Receive Date: 20090629
  Receipt Date: 20090629
  Transmission Date: 20091009
  Serious: Yes (Hospitalization)
  Sender: FDA-Public Use
  Company Number: None

PATIENT
  Age: 69 Year
  Sex: Male
  Weight: 100 kg

DRUGS (2)
  1. VERAPAMIL [Suspect]
     Dosage: 1 TABLET DAILY PO
     Route: 048
  2. ATENOLOL [Suspect]
     Dosage: 1 TAB DAILY PO
     Route: 048

REACTIONS (11)
  - COUGH [None]
  - DYSPNOEA [None]
  - FATIGUE [None]
  - HEADACHE [None]
  - HEPATIC FUNCTION ABNORMAL [None]
  - HYPOTENSION [None]
  - NODAL RHYTHM [None]
  - PYREXIA [None]
  - RASH MACULO-PAPULAR [None]
  - RENAL IMPAIRMENT [None]
  - SINUS BRADYCARDIA [None]
